FAERS Safety Report 20197877 (Version 1)
Quarter: 2021Q4

REPORT INFORMATION
  Report Type: Spontaneous
  Country: US (occurrence: None)
  Receive Date: 20211217
  Receipt Date: 20211217
  Transmission Date: 20220303
  Serious: No
  Sender: FDA-Public Use
  Company Number: US-VistaPharm, Inc.-VER202110-002057

PATIENT
  Age: 69 Year
  Sex: Female
  Weight: 56.25 kg

DRUGS (2)
  1. THYQUIDITY [Suspect]
     Active Substance: LEVOTHYROXINE SODIUM
     Indication: Hypothyroidism
     Dosage: 4.4 ML
     Route: 065
     Dates: start: 20210929
  2. CYTOMEL [Suspect]
     Active Substance: LIOTHYRONINE SODIUM
     Indication: Hypothyroidism
     Dosage: 5 MCG
     Route: 065

REACTIONS (9)
  - Decreased appetite [Unknown]
  - Throat irritation [Unknown]
  - Weight increased [Unknown]
  - Headache [Unknown]
  - Alopecia [Not Recovered/Not Resolved]
  - Insomnia [Unknown]
  - Muscular weakness [Unknown]
  - Rash [Not Recovered/Not Resolved]
  - Product use complaint [Unknown]

NARRATIVE: CASE EVENT DATE: 20210930
